FAERS Safety Report 20638874 (Version 8)
Quarter: 2022Q3

REPORT INFORMATION
  Report Type: Report from Study
  Country: US (occurrence: US)
  Receive Date: 20220325
  Receipt Date: 20220826
  Transmission Date: 20221026
  Serious: Yes (Hospitalization, Other)
  Sender: FDA-Public Use
  Company Number: US-GILEAD-2022-0568774

PATIENT
  Age: 44 Year
  Sex: Female

DRUGS (7)
  1. AMBRISENTAN [Suspect]
     Active Substance: AMBRISENTAN
     Indication: Pulmonary arterial hypertension
     Dosage: 10 MG, QD
     Route: 048
     Dates: start: 20200130
  2. AMBRISENTAN [Suspect]
     Active Substance: AMBRISENTAN
     Indication: Pulmonary hypertension
  3. VELETRI [Suspect]
     Active Substance: EPOPROSTENOL
     Indication: Product used for unknown indication
     Route: 065
  4. SILDENAFIL [Concomitant]
     Active Substance: SILDENAFIL
  5. REVATIO OD [Concomitant]
  6. ADEMPAS [Concomitant]
     Active Substance: RIOCIGUAT
  7. AMBRISENTAN [Concomitant]
     Active Substance: AMBRISENTAN

REACTIONS (19)
  - Pulmonary arterial hypertension [Unknown]
  - Cardiac failure chronic [Unknown]
  - Cardiac failure congestive [Not Recovered/Not Resolved]
  - Respiratory failure [Unknown]
  - Dyspnoea [Not Recovered/Not Resolved]
  - COVID-19 [Unknown]
  - Acute kidney injury [Not Recovered/Not Resolved]
  - Pallor [Unknown]
  - Dizziness [Unknown]
  - Chest pain [Unknown]
  - Nausea [Recovered/Resolved]
  - Dyspnoea [Unknown]
  - Catheter site haemorrhage [Unknown]
  - Hyperhidrosis [Unknown]
  - Feeling abnormal [Unknown]
  - Myalgia [Recovered/Resolved]
  - Diarrhoea [Recovered/Resolved]
  - Fatigue [Recovered/Resolved]
  - Hot flush [Recovered/Resolved]

NARRATIVE: CASE EVENT DATE: 20220201
